FAERS Safety Report 22019891 (Version 1)
Quarter: 2023Q1

REPORT INFORMATION
  Report Type: Spontaneous
  Country: NO (occurrence: NO)
  Receive Date: 20230222
  Receipt Date: 20230222
  Transmission Date: 20230418
  Serious: Yes (Death, Other)
  Sender: FDA-Public Use
  Company Number: None

PATIENT
  Age: 73 Year
  Sex: Female

DRUGS (5)
  1. YERVOY [Suspect]
     Active Substance: IPILIMUMAB
     Indication: Renal cancer
     Dosage: 1 MG/KG, EVERY THIRD WEEK
     Dates: start: 20221024, end: 20221206
  2. OPDIVO [Suspect]
     Active Substance: NIVOLUMAB
     Indication: Renal cancer
     Dosage: 3 MG/KG, EVERY THIRD WEEK
     Dates: start: 20221024, end: 20221206
  3. HERCEPTIN [Concomitant]
     Active Substance: TRASTUZUMAB
     Indication: Breast cancer metastatic
     Dates: start: 202208
  4. FRAGMIN [Concomitant]
     Active Substance: DALTEPARIN SODIUM
     Indication: Vena cava thrombosis
     Dosage: PAUSED DUE TO WORSENED RENAL FUNCTION.
     Dates: end: 20221227
  5. FRAGMIN [Concomitant]
     Active Substance: DALTEPARIN SODIUM
     Dosage: INITIATED AGAIN AFTER IMPROVEMENT OF RENAL FUNCTION.
     Dates: start: 202201

REACTIONS (2)
  - Pulmonary oedema [Recovered/Resolved]
  - Tubulointerstitial nephritis [Fatal]

NARRATIVE: CASE EVENT DATE: 20221227
